FAERS Safety Report 18902127 (Version 5)
Quarter: 2022Q4

REPORT INFORMATION
  Report Type: Spontaneous
  Country: US (occurrence: US)
  Receive Date: 20210216
  Receipt Date: 20221104
  Transmission Date: 20230112
  Serious: Yes (Other)
  Sender: FDA-Public Use
  Company Number: US-PFIZER INC-2021127647

PATIENT
  Age: 86 Year
  Weight: 70.3 kg

DRUGS (1)
  1. PREMARIN [Suspect]
     Active Substance: ESTROGENS, CONJUGATED
     Dosage: UNK

REACTIONS (4)
  - Mental impairment [Unknown]
  - Drug dependence [Unknown]
  - Withdrawal syndrome [Unknown]
  - Feeling abnormal [Unknown]
